FAERS Safety Report 6397643-5 (Version None)
Quarter: 2009Q4

REPORT INFORMATION
  Report Type: 
  Country: None (occurrence: None)
  Receive Date: 20091012
  Receipt Date: 20090928
  Transmission Date: 20100525
  Serious: Yes (Other)
  Sender: FDA-Public Use
  Company Number: AU-MYLANLABS-2009S1016992

PATIENT
  Age: 36 Year
  Sex: Male

DRUGS (3)
  1. PAXTINE [Suspect]
     Indication: ANXIETY
     Route: 048
     Dates: start: 20090701
  2. SEROQUEL [Concomitant]
  3. VALIUM [Concomitant]

REACTIONS (4)
  - ABNORMAL BEHAVIOUR [None]
  - AGGRESSION [None]
  - ANGER [None]
  - PHYSICAL ASSAULT [None]
